FAERS Safety Report 6740208-3 (Version None)
Quarter: 2010Q2

REPORT INFORMATION
  Report Type: 
  Country: None (occurrence: None)
  Receive Date: 20100525
  Receipt Date: 20100519
  Transmission Date: 20101027
  Serious: Yes (Other)
  Sender: FDA-Public Use
  Company Number: A0860941A

PATIENT
  Age: 56 Year
  Sex: Female
  Weight: 68.2 kg

DRUGS (3)
  1. WELLBUTRIN [Suspect]
     Indication: DEPRESSION
     Route: 048
  2. XANAX [Suspect]
     Indication: ANXIETY
     Dosage: .5MG PER DAY
     Route: 048
  3. NO CONCURRENT MEDICATIONS [Concomitant]

REACTIONS (2)
  - MENTAL IMPAIRMENT [None]
  - TINNITUS [None]
